FAERS Safety Report 8423380-9 (Version None)
Quarter: 2012Q2

REPORT INFORMATION
  Report Type: 
  Country: None (occurrence: None)
  Receive Date: 20120608
  Receipt Date: 20120524
  Transmission Date: 20120825
  Serious: Yes (Other)
  Sender: FDA-Public Use
  Company Number: CHPA2012US011460

PATIENT
  Sex: Female

DRUGS (5)
  1. ASPIRIN [Concomitant]
     Indication: PROPHYLAXIS
     Dosage: UNK
     Route: 048
     Dates: start: 20000101
  2. EXCEDRIN EXTRA STRENGTH TABLETS [Suspect]
     Indication: TENSION HEADACHE
     Dosage: 2-4 DF, ALMOST EVERY DAY
     Route: 048
     Dates: start: 19760101
  3. NASAL SPRAY [Concomitant]
     Indication: HYPERSENSITIVITY
  4. PLAVIX [Concomitant]
     Indication: CARDIAC DISORDER
     Dosage: UNK
     Dates: start: 20000101
  5. VICKS INH [Concomitant]
     Indication: HYPERSENSITIVITY
     Dosage: UNK

REACTIONS (4)
  - ROAD TRAFFIC ACCIDENT [None]
  - ARTHRALGIA [None]
  - BACK PAIN [None]
  - MYOCARDIAL INFARCTION [None]
